FAERS Safety Report 8519691-9 (Version None)
Quarter: 2012Q3

REPORT INFORMATION
  Report Type: 
  Country: None (occurrence: None)
  Receive Date: 20120719
  Receipt Date: 20120706
  Transmission Date: 20120928
  Serious: Yes (Other)
  Sender: FDA-Public Use
  Company Number: AR-AMGEN-ARGSP2012043503

PATIENT
  Age: 48 Year
  Sex: Female

DRUGS (3)
  1. ENBREL [Suspect]
     Indication: RHEUMATOID ARTHRITIS
     Dosage: 50 MG, WEEKLY
     Route: 058
     Dates: start: 20081102, end: 20120601
  2. ANTIBIOTICS [Concomitant]
     Dosage: UNK
  3. MEPREDNISONE [Concomitant]
     Dosage: UNK

REACTIONS (3)
  - DEVICE RELATED INFECTION [None]
  - DEVICE DISLOCATION [None]
  - FALL [None]
